FAERS Safety Report 7623116-5 (Version None)
Quarter: 2011Q3

REPORT INFORMATION
  Report Type: 
  Country: None (occurrence: None)
  Receive Date: 20110720
  Receipt Date: 20110707
  Transmission Date: 20111222
  Serious: Yes (Hospitalization, Other)
  Sender: FDA-Public Use
  Company Number: PHHY2011AU61082

PATIENT
  Sex: Female

DRUGS (2)
  1. CLOZAPINE [Suspect]
     Indication: SCHIZOAFFECTIVE DISORDER
     Dosage: 800 MG, UNK
     Dates: start: 19960815
  2. ZUCLOPENTHIXOL [Concomitant]

REACTIONS (8)
  - MALAISE [None]
  - SUBSTANCE ABUSE [None]
  - PSYCHOTIC DISORDER [None]
  - OVERWEIGHT [None]
  - URINE AMPHETAMINE [None]
  - ALCOHOL USE [None]
  - DISINHIBITION [None]
  - ABNORMAL BEHAVIOUR [None]
